FAERS Safety Report 8197016-9 (Version None)
Quarter: 2012Q1

REPORT INFORMATION
  Report Type: 
  Country: None (occurrence: None)
  Receive Date: 20120309
  Receipt Date: 20120228
  Transmission Date: 20120608
  Serious: Yes (Hospitalization)
  Sender: FDA-Public Use
  Company Number: US-ELI_LILLY_AND_COMPANY-US201112004630

PATIENT
  Sex: Female

DRUGS (12)
  1. FORTEO [Suspect]
     Dosage: 20 UG, QD
     Route: 058
     Dates: start: 20100630
  2. CO Q-10 [Concomitant]
     Dosage: 100 MG, QD
  3. GLUCOSAMINE [Concomitant]
     Dosage: UNK, QD
     Route: 048
  4. OMEPRAZOLE [Concomitant]
     Dosage: 20 MG, QD
     Route: 048
  5. VITAMIN B-12 [Concomitant]
     Dosage: 500 MG, QD
     Route: 048
  6. ACETYLSALICYLIC ACID SRT [Concomitant]
     Dosage: 81 MG, QD
     Route: 048
  7. VITAMIN D [Concomitant]
     Dosage: 2000 IU, QD
     Route: 048
  8. LOVAZA [Concomitant]
     Dosage: UNK, BID
  9. CALTRATE + D [Concomitant]
     Dosage: UNK, BID
     Route: 048
  10. LYRICA [Concomitant]
     Dosage: 75 MG, BID
     Route: 048
  11. EVISTA [Concomitant]
     Dosage: 60 MG, QD
  12. MULTI-VITAMIN [Concomitant]
     Dosage: UNK, QD
     Route: 048

REACTIONS (2)
  - NEUROPATHY PERIPHERAL [None]
  - HERPES ZOSTER [None]
